FAERS Safety Report 16912487 (Version 1)
Quarter: 2019Q4

REPORT INFORMATION
  Report Type: Spontaneous
  Country: NO (occurrence: NO)
  Receive Date: 20191014
  Receipt Date: 20191014
  Transmission Date: 20200122
  Serious: Yes (Death, Other)
  Sender: FDA-Public Use
  Company Number: NO-009507513-1910NOR006316

PATIENT
  Age: 77 Year
  Sex: Female

DRUGS (1)
  1. KEYTRUDA [Suspect]
     Active Substance: PEMBROLIZUMAB
     Indication: LUNG NEOPLASM MALIGNANT
     Dosage: NOT KNOWN TO REPORTER;L01XC18 - PEMBROLIZUMAB
     Route: 042
     Dates: start: 201710, end: 201901

REACTIONS (3)
  - Inflammation [Unknown]
  - Cardiomegaly [Unknown]
  - Death [Fatal]

NARRATIVE: CASE EVENT DATE: 20190209
